FAERS Safety Report 18519834 (Version 1)
Quarter: 2020Q4

REPORT INFORMATION
  Report Type: Other
  Country: CA (occurrence: CA)
  Receive Date: 20201118
  Receipt Date: 20201118
  Transmission Date: 20210114
  Serious: Yes (Hospitalization, Other)
  Sender: FDA-Public Use
  Company Number: CA-PURDUE-USA-2020-0177410

PATIENT
  Age: 31 Year
  Sex: Female

DRUGS (2)
  1. OXYCODONE HYDROCHLORIDE. [Suspect]
     Active Substance: OXYCODONE HYDROCHLORIDE
     Indication: PRODUCT USED FOR UNKNOWN INDICATION
     Dosage: UNK
     Route: 065
  2. COCAINE [Suspect]
     Active Substance: COCAINE
     Indication: PRODUCT USED FOR UNKNOWN INDICATION
     Dosage: UNK
     Route: 065

REACTIONS (8)
  - Dysarthria [Unknown]
  - Speech disorder [Unknown]
  - Regurgitation [Unknown]
  - Drug abuse [Unknown]
  - Rhinorrhoea [Unknown]
  - Velopharyngeal incompetence [Unknown]
  - Nasal septum perforation [Unknown]
  - Nasal necrosis [Unknown]
